FAERS Safety Report 15056369 (Version 1)
Quarter: 2018Q2

REPORT INFORMATION
  Report Type: Spontaneous
  Country: US (occurrence: US)
  Receive Date: 20180603
  Receipt Date: 20180603
  Transmission Date: 20180711
  Serious: Yes (Hospitalization, Other)
  Sender: FDA-Public Use
  Company Number: None

PATIENT
  Age: 35 Month
  Sex: Female
  Weight: 11.7 kg

DRUGS (3)
  1. PRUNES [Concomitant]
  2. GUMMY VITAMINS [Concomitant]
  3. MIRALAX [Suspect]
     Active Substance: POLYETHYLENE GLYCOL 3350
     Indication: BOWEL MOVEMENT IRREGULARITY
     Dates: start: 20180108, end: 20180501

REACTIONS (2)
  - Aggression [None]
  - Emotional disorder [None]

NARRATIVE: CASE EVENT DATE: 20180201
